FAERS Safety Report 5834495-3 (Version None)
Quarter: 2008Q3

REPORT INFORMATION
  Report Type: 
  Country: None (occurrence: None)
  Receive Date: 20080805
  Receipt Date: 20040817
  Transmission Date: 20090109
  Serious: No
  Sender: FDA-Public Use
  Company Number: US-ASTRAZENECA-2004UW11794

PATIENT
  Age: 22 Year
  Sex: Female
  Weight: 68 kg

DRUGS (9)
  1. SEROQUEL [Suspect]
     Indication: SCHIZOAFFECTIVE DISORDER
     Route: 048
     Dates: start: 20000101
  2. SEROQUEL [Suspect]
     Indication: HALLUCINATION
     Route: 048
     Dates: start: 20000101
  3. SEROQUEL [Suspect]
     Indication: PARANOIA
     Route: 048
     Dates: start: 20000101
  4. SEROQUEL [Suspect]
     Dosage: 25 TO 50 MG PER DAY
     Route: 048
     Dates: start: 20031208
  5. SEROQUEL [Suspect]
     Dosage: 25 TO 50 MG PER DAY
     Route: 048
     Dates: start: 20031208
  6. SEROQUEL [Suspect]
     Dosage: 25 TO 50 MG PER DAY
     Route: 048
     Dates: start: 20031208
  7. ZOLOFT [Suspect]
     Indication: DEPRESSION
  8. ZOLOFT [Suspect]
     Indication: ANXIETY
  9. VITAMIN TAB [Concomitant]

REACTIONS (1)
  - PREMATURE BABY [None]
